FAERS Safety Report 8119373 (Version 7)
Quarter: 2012Q4

REPORT INFORMATION
  Report Type: Report from Study
  Country: US (occurrence: ZA)
  Receive Date: 20110902
  Receipt Date: 20121128
  Transmission Date: 20130627
  Serious: Yes (Hospitalization)
  Sender: FDA-Public Use
  Company Number: ZA-BRISTOL-MYERS SQUIBB COMPANY-16003741

PATIENT
  Age: 65 Year
  Sex: Male

DRUGS (6)
  1. BLINDED: SAXAGLIPTIN [Suspect]
     Indication: TYPE 2 DIABETES MELLITUS
     Dosage: Interrupted on 23Aug2011
     Dates: start: 20110513, end: 20110823
  2. GLUCOPHAGE [Suspect]
     Indication: DIABETES MELLITUS
     Dosage: Unkn-29Oct12:500mg, 30oct12-ongoin:2g
  3. GLICLAZIDE [Suspect]
     Indication: DIABETES MELLITUS
     Dosage: Unkn-10nov11:160mg, 11nov11-29oct12:240mg, 30oct12-ongoin: 320mg
  4. BLINDED: PLACEBO [Suspect]
     Indication: TYPE 2 DIABETES MELLITUS
     Dosage: Interuupted on 23Aug2011
     Dates: start: 20110513, end: 20110823
  5. LISINOPRIL + HCTZ [Suspect]
  6. ASPIRIN [Concomitant]
     Dosage: 1df:{100mg

REACTIONS (1)
  - Pancreatitis [Recovered/Resolved]
